FAERS Safety Report 25035958 (Version 1)
Quarter: 2025Q1

REPORT INFORMATION
  Report Type: Spontaneous
  Country: US (occurrence: None)
  Receive Date: 20250303
  Receipt Date: 20250303
  Transmission Date: 20250409
  Serious: Yes (Life-Threatening, Hospitalization)
  Sender: FDA-CTU
  Company Number: None

PATIENT
  Age: 54 Year
  Sex: Male
  Weight: 110.2 kg

DRUGS (1)
  1. ASPIRIN [Suspect]
     Active Substance: ASPIRIN
     Dosage: FREQUENCY : TWICE A DAY;?
     Route: 048
     Dates: start: 20250225, end: 20250301

REACTIONS (3)
  - Joint swelling [None]
  - Joint range of motion decreased [None]
  - Pulmonary embolism [None]

NARRATIVE: CASE EVENT DATE: 20250301
